FAERS Safety Report 11741765 (Version 1)
Quarter: 2015Q4

REPORT INFORMATION
  Report Type: Spontaneous
  Country: BR (occurrence: BR)
  Receive Date: 20151116
  Receipt Date: 20151116
  Transmission Date: 20160304
  Serious: Yes (Death, Hospitalization, Other)
  Sender: FDA-Public Use
  Company Number: BR-WATSON-2015-19132

PATIENT
  Age: 71 Year
  Sex: Male

DRUGS (3)
  1. PREDNISONE (UNKNOWN) [Suspect]
     Active Substance: PREDNISONE
     Dosage: 1.5 MG/KG, DAILY
     Route: 065
  2. PREDNISONE (UNKNOWN) [Suspect]
     Active Substance: PREDNISONE
     Indication: PEMPHIGUS
     Dosage: 1 MG/KG, DAILY
     Route: 065
  3. INSULIN [Concomitant]
     Active Substance: INSULIN NOS
     Indication: DIABETES MELLITUS
     Dosage: UNK
     Route: 042

REACTIONS (5)
  - Trichosporon infection [Not Recovered/Not Resolved]
  - Septic shock [Fatal]
  - Renal failure [Not Recovered/Not Resolved]
  - Respiratory failure [Not Recovered/Not Resolved]
  - Pneumonia fungal [Not Recovered/Not Resolved]
